FAERS Safety Report 22679241 (Version 7)
Quarter: 2024Q1

REPORT INFORMATION
  Report Type: Report from Study
  Country: PT (occurrence: PT)
  Receive Date: 20230706
  Receipt Date: 20240111
  Transmission Date: 20240409
  Serious: Yes (Other)
  Sender: FDA-Public Use
  Company Number: PT-ABBVIE-5316055

PATIENT
  Age: 71 Year
  Sex: Female

DRUGS (15)
  1. CARBIDOPA\LEVODOPA [Suspect]
     Active Substance: CARBIDOPA\LEVODOPA
     Indication: Parkinson^s disease
     Dosage: 20 MG + 5 MG,?FREQUENCY TEXT: MORNING 12CC; MAINTENANCE 2CC/H; EXTRA 2CC
     Route: 050
     Dates: start: 20210707
  2. CARBIDOPA\LEVODOPA [Suspect]
     Active Substance: CARBIDOPA\LEVODOPA
     Dosage: 20 MG + 5 MG (VIA PEG),?FREQUENCY TEXT: MORNING 10CC, MAINTENANCE 5CC/H, EXTRA 5CC
     Route: 050
     Dates: start: 20230529, end: 202306
  3. CARBIDOPA\LEVODOPA [Suspect]
     Active Substance: CARBIDOPA\LEVODOPA
     Dosage: 20 MG + 5 MG (VIA PEG),?FREQUENCY TEXT: MORNING 10CC, MAINTENANCE 5CC/H, EXTRA 5CC
     Route: 050
     Dates: start: 202306, end: 20230728
  4. CARBIDOPA\LEVODOPA [Suspect]
     Active Substance: CARBIDOPA\LEVODOPA
     Dosage: 20 MG + 5 MG (VIA PEG)?FREQUENCY TEXT: MORNING :10CC;MAINTAINANCE :5.5CC/H;EXTRA:5.5CC
     Route: 050
     Dates: start: 20230728, end: 20230809
  5. CARBIDOPA\LEVODOPA [Suspect]
     Active Substance: CARBIDOPA\LEVODOPA
     Dosage: 20 MG + 5 MG?FREQUENCY TEXT: MORNING :10CC;MAINTAINANCE :5.5CC/H;EXTRA:5.5CC
     Route: 050
     Dates: start: 20230809, end: 202310
  6. CARBIDOPA\LEVODOPA [Suspect]
     Active Substance: CARBIDOPA\LEVODOPA
     Dosage: 20 MG + 5 MG?FREQUENCY TEXT: MORN:11CC;MAINT:4.8CC/H;EXTR:5.5CC
     Route: 050
     Dates: start: 202310
  7. CLONAZEPAM [Concomitant]
     Active Substance: CLONAZEPAM
     Indication: Product used for unknown indication
     Dosage: 2 TABLET?FORM STRENGTH: 2 MILLIGRAM?FREQUENCY: AT BEDTIME?START DATE: BEFORE DUODOPA
  8. CLONAZEPAM [Concomitant]
     Active Substance: CLONAZEPAM
     Indication: Product used for unknown indication
     Dosage: 1 TABLET?FORM STRENGTH: 0.5 MILLIGRAM?START DATE: BEFORE DUODOPA
  9. CLOXAZOLAM [Concomitant]
     Active Substance: CLOXAZOLAM
     Indication: Product used for unknown indication
     Dosage: FORM STRENGTH: 2 MILLIGRAM,?FREQUENCY TEXT: ONCE AT NIGHT,?START DATE TEXT: BEFORE DUODOPA
  10. ESCITALOPRAM [Concomitant]
     Active Substance: ESCITALOPRAM OXALATE
     Indication: Product used for unknown indication
     Dosage: FORM STRENGTH: 20 MILLIGRAM,?START DATE TEXT: BEFORE DUODOPA
  11. QUETIAPINE [Concomitant]
     Active Substance: QUETIAPINE
     Indication: Product used for unknown indication
     Dosage: START DATE TEXT: BEFORE DUODOPA
     Route: 048
  12. DOMPERIDONE [Concomitant]
     Active Substance: DOMPERIDONE
     Indication: Product used for unknown indication
     Dosage: TIME INTERVAL: 0.33333333 DAYS: FORM STRENGTH: 10 MILLIGRAM,?START DATE TEXT: BEFORE DUODOPA
  13. AMITRIPTYLINE [Concomitant]
     Active Substance: AMITRIPTYLINE
     Indication: Product used for unknown indication
     Dosage: FORM STRENGTH: 25 MILLIGRAM,?START DATE TEXT: BEFORE DUODOPA
  14. RIVASTIGMINE [Concomitant]
     Active Substance: RIVASTIGMINE
     Indication: Product used for unknown indication
     Dosage: FORM STRENGTH: 4.6 MILLIGRAM?START DATE TEXT: BEFORE DUODOPA
     Route: 062
  15. OMEPRAZOLE [Concomitant]
     Active Substance: OMEPRAZOLE
     Indication: Product used for unknown indication
     Dosage: FORM STRENGTH: 40 MILLIGRAM,?START DATE TEXT: BEFORE DUODOPA

REACTIONS (2)
  - Candida infection [Not Recovered/Not Resolved]
  - Stoma site discharge [Recovered/Resolved]

NARRATIVE: CASE EVENT DATE: 20230601
